FAERS Safety Report 8286598-4 (Version None)
Quarter: 2012Q1

REPORT INFORMATION
  Report Type: 
  Country: None (occurrence: None)
  Receive Date: 20120323
  Receipt Date: 20120312
  Transmission Date: 20120608
  Serious: Yes (Hospitalization)
  Sender: FDA-Public Use
  Company Number: 2012031603

PATIENT
  Age: 60 Year
  Sex: Female
  Weight: 48.9885 kg

DRUGS (18)
  1. FERROUS SULFATE TAB [Concomitant]
  2. HEPARIN [Concomitant]
  3. VAGIFEM [Concomitant]
  4. GLUCOSAMINE [Concomitant]
  5. ACETAMINOPHEN [Concomitant]
  6. HIZENTRA [Suspect]
     Indication: IMMUNODEFICIENCY COMMON VARIABLE
     Dates: start: 20120310
  7. ASPIRIN [Concomitant]
  8. SIMVASTATIN [Concomitant]
  9. RENAGEL [Concomitant]
  10. COREG [Concomitant]
  11. BENEFIBER (CYAMOPSIS TETRAGONOLOBA GUM) [Concomitant]
  12. EPOGEN [Concomitant]
  13. HIZENTRA [Suspect]
     Indication: IMMUNODEFICIENCY COMMON VARIABLE
     Dates: start: 20120310
  14. GENTAMICIN [Concomitant]
  15. VITAMIN B12 [Concomitant]
  16. HIZENTRA [Suspect]
     Indication: IMMUNODEFICIENCY COMMON VARIABLE
     Dosage: 6 G 1X/WEEK, 6 G (30 ML) VIA 2 SITES OVER 1 HOUR SUBCUTANEOUS
     Route: 058
     Dates: start: 20110830
  17. ARTHROTEC [Concomitant]
  18. PREDNISONE TAB [Concomitant]

REACTIONS (4)
  - FATIGUE [None]
  - FUNGAL OESOPHAGITIS [None]
  - PYREXIA [None]
  - CHEST DISCOMFORT [None]
